FAERS Safety Report 8176668-3 (Version None)
Quarter: 2012Q1

REPORT INFORMATION
  Report Type: 
  Country: None (occurrence: None)
  Receive Date: 20120301
  Receipt Date: 20120222
  Transmission Date: 20120608
  Serious: Yes (Hospitalization)
  Sender: FDA-Public Use
  Company Number: US-BAYER-2012-005573

PATIENT
  Age: 40 Year
  Sex: Female
  Weight: 58.367 kg

DRUGS (1)
  1. MIRENA [Suspect]
     Indication: CONTRACEPTION
     Dosage: 20 MCG/24HR, CONT
     Route: 015
     Dates: start: 20110415, end: 20120101

REACTIONS (5)
  - FATIGUE [None]
  - OCULAR ICTERUS [None]
  - APHAGIA [None]
  - HEPATITIS [None]
  - JAUNDICE [None]
